FAERS Safety Report 17160716 (Version 1)
Quarter: 2019Q4

REPORT INFORMATION
  Report Type: Spontaneous
  Country: US (occurrence: US)
  Receive Date: 20191216
  Receipt Date: 20191216
  Transmission Date: 20200122
  Serious: Yes (Hospitalization, Other)
  Sender: FDA-Public Use
  Company Number: US-TAKEDA-2019TUS070699

PATIENT
  Age: 64 Year
  Sex: Female

DRUGS (10)
  1. NINLARO [Suspect]
     Active Substance: IXAZOMIB CITRATE
     Indication: PLASMA CELL MYELOMA
     Dosage: 3 MILLIGRAM
     Route: 048
  2. DEXAMETHASONE. [Concomitant]
     Active Substance: DEXAMETHASONE
  3. PRAVASTATIN. [Concomitant]
     Active Substance: PRAVASTATIN
  4. LISINOPRIL. [Concomitant]
     Active Substance: LISINOPRIL
  5. ACYCLOVIR                          /00587301/ [Concomitant]
     Active Substance: ACYCLOVIR
  6. METOPROLOL SUCC CT [Concomitant]
     Active Substance: METOPROLOL SUCCINATE
  7. REVLIMID [Concomitant]
     Active Substance: LENALIDOMIDE
  8. LEVOTHYROXINE. [Concomitant]
     Active Substance: LEVOTHYROXINE
  9. PREDNISONE. [Concomitant]
     Active Substance: PREDNISONE
  10. TACROLIMUS. [Concomitant]
     Active Substance: TACROLIMUS

REACTIONS (2)
  - Plasma cell myeloma recurrent [Unknown]
  - Infection [Unknown]

NARRATIVE: CASE EVENT DATE: 20191201
